FAERS Safety Report 10599029 (Version 1)
Quarter: 2014Q4

REPORT INFORMATION
  Report Type: Spontaneous
  Country: DE (occurrence: DE)
  Receive Date: 20141121
  Receipt Date: 20141121
  Transmission Date: 20150529
  Serious: Yes (Congenital Anomaly, Other)
  Sender: FDA-Public Use
  Company Number: GXKR2014DE004279

PATIENT

DRUGS (5)
  1. TORASEMID [Concomitant]
     Active Substance: TORSEMIDE
     Indication: CARDIAC FAILURE
     Dosage: 2.5 [MG/D ]
     Route: 064
     Dates: start: 20130629, end: 20140122
  2. METOPROLOL [Concomitant]
     Active Substance: METOPROLOL
     Indication: CARDIAC FAILURE
     Dosage: 23.75 [MG/D ]
     Route: 064
     Dates: start: 20131213, end: 20140122
  3. BISOPROLOL [Concomitant]
     Active Substance: BISOPROLOL
     Indication: CARDIAC FAILURE
     Dosage: 2.5 [MG/D (2X1.25) ]
     Route: 064
     Dates: start: 20130629, end: 20131212
  4. CANDESARTAN CILEXETIL. [Suspect]
     Active Substance: CANDESARTAN CILEXETIL
     Indication: CARDIAC FAILURE
     Dosage: 4 [MG/D ]
     Route: 064
     Dates: start: 20130629, end: 20131218
  5. CELESTAN DEPOT [Concomitant]
     Indication: MATERNAL THERAPY TO ENHANCE FOETAL LUNG MATURITY
     Dosage: 3 [MG/D ]
     Route: 064
     Dates: start: 20131215, end: 20131217

REACTIONS (5)
  - Pulmonary hypertension [Unknown]
  - Pulmonary hypoplasia [Unknown]
  - Patent ductus arteriosus [Recovered/Resolved]
  - Atrial septal defect [Unknown]
  - Oedema neonatal [Recovering/Resolving]

NARRATIVE: CASE EVENT DATE: 20140122
